FAERS Safety Report 8385834-3 (Version None)
Quarter: 2012Q2

REPORT INFORMATION
  Report Type: 
  Country: None (occurrence: None)
  Receive Date: 20120525
  Receipt Date: 20120518
  Transmission Date: 20120825
  Serious: Yes (Hospitalization)
  Sender: FDA-Public Use
  Company Number: TH-GE HEALTHCARE MEDICAL DIAGNOSTICS-VISP-NO-1002S-0058

PATIENT
  Age: 75 Year
  Sex: Male

DRUGS (18)
  1. FUROSEMIDE [Concomitant]
  2. SENNA ALEXANDRINA (SENOKOT) [Concomitant]
  3. VISIPAQUE [Suspect]
     Indication: COLON CANCER
  4. LORAZEPAM [Concomitant]
  5. VISIPAQUE [Suspect]
     Indication: FLATULENCE
     Route: 042
     Dates: start: 20100126, end: 20100126
  6. ASPIRIN [Concomitant]
  7. COLCHICINE [Concomitant]
  8. BISOPROLOL FUMARATE (CONCOR) [Concomitant]
  9. LIPITOR [Concomitant]
  10. MANIDIPINE HYDROCHLORIDE (MADIPLOT) [Concomitant]
  11. ALLOPURINOL [Concomitant]
  12. CLARITHROMYCIN [Concomitant]
  13. ISOSORBIDE MONONITRATE [Concomitant]
  14. TRIMETAZIDINE HYDROCHLORIDE (VASTAREL) [Concomitant]
  15. GLIPIZIDE (MINIDIAB) [Concomitant]
  16. BUDESONIDE W/FORMOTEROL FUMARATE (SYMBICORT) [Concomitant]
  17. DOXAZOSIN MESYLATE (CARDURA XL) [Concomitant]
  18. OMEPRAZOLE [Concomitant]

REACTIONS (4)
  - PARAPLEGIA [None]
  - ANURIA [None]
  - HEPATITIS [None]
  - PANCYTOPENIA [None]
